FAERS Safety Report 6711984-0 (Version None)
Quarter: 2010Q2

REPORT INFORMATION
  Report Type: 
  Country: None (occurrence: None)
  Receive Date: 20100505
  Receipt Date: 20100427
  Transmission Date: 20101027
  Serious: Yes (Hospitalization)
  Sender: FDA-Public Use
  Company Number: JP-B.I. PHARMACEUTICALS,INC./RIDGEFIELD-2010-BP-04816NB

PATIENT
  Age: 76 Year
  Sex: Female

DRUGS (6)
  1. BI-SIFROL TABLETS [Suspect]
     Indication: PARKINSON'S DISEASE
     Dosage: 1.5 MG
     Route: 048
  2. BI-SIFROL TABLETS [Suspect]
     Indication: RESTLESS LEGS SYNDROME
  3. MENESIT [Concomitant]
     Dosage: 300 MG
     Route: 048
  4. ZOLOFT [Concomitant]
     Dosage: 50 MG
     Route: 048
  5. DEPAS [Concomitant]
     Route: 048
  6. CANDESARTAN CILEXETIL [Concomitant]
     Route: 048

REACTIONS (2)
  - BIPOLAR DISORDER [None]
  - LOSS OF CONSCIOUSNESS [None]
